FAERS Safety Report 8954323 (Version 3)
Quarter: 2013Q1

REPORT INFORMATION
  Report Type: Spontaneous
  Country: ES (occurrence: ES)
  Receive Date: 20121207
  Receipt Date: 20130228
  Transmission Date: 20140127
  Serious: Yes (Other)
  Sender: FDA-Public Use
  Company Number: ES-ABBOTT-12P-144-1015928-00

PATIENT
  Age: 16 Year
  Sex: Male

DRUGS (2)
  1. VALPROIC ACID [Suspect]
     Indication: IDIOPATHIC GENERALISED EPILEPSY
     Dates: start: 201008, end: 201106
  2. VALPROIC ACID [Suspect]
     Dates: end: 201108

REACTIONS (8)
  - Cognitive disorder [Recovered/Resolved]
  - Encephalopathy [Recovered/Resolved]
  - Convulsion [Recovered/Resolved]
  - Condition aggravated [Recovered/Resolved]
  - Treatment noncompliance [Recovered/Resolved]
  - Bradyphrenia [Recovered/Resolved]
  - Somnolence [Recovered/Resolved]
  - Irritability [Recovered/Resolved]
